FAERS Safety Report 7702374-2 (Version None)
Quarter: 2011Q3

REPORT INFORMATION
  Report Type: 
  Country: None (occurrence: None)
  Receive Date: 20110822
  Receipt Date: 20110812
  Transmission Date: 20111222
  Serious: Yes (Other)
  Sender: FDA-Public Use
  Company Number: US-B.I. PHARMACEUTICALS,INC./RIDGEFIELD-2011-BP-20388BP

PATIENT

DRUGS (3)
  1. PLAVIX [Suspect]
  2. ASPIRIN [Suspect]
  3. PRADAXA [Suspect]

REACTIONS (1)
  - PERICARDIAL EFFUSION [None]
